FAERS Safety Report 17093976 (Version 1)
Quarter: 2019Q4

REPORT INFORMATION
  Report Type: Spontaneous
  Country: GB (occurrence: GB)
  Receive Date: 20191129
  Receipt Date: 20191129
  Transmission Date: 20200122
  Serious: Yes (Other)
  Sender: FDA-Public Use
  Company Number: GB-NOVOPROD-698016

PATIENT
  Sex: Male

DRUGS (1)
  1. TRESIBA [Suspect]
     Active Substance: INSULIN DEGLUDEC
     Indication: TYPE 2 DIABETES MELLITUS
     Dosage: 12 ARBITARY UNITS
     Route: 065

REACTIONS (2)
  - Myocardial infarction [Recovering/Resolving]
  - Lip and/or oral cavity cancer [Recovered/Resolved]

NARRATIVE: CASE EVENT DATE: 201810
